FAERS Safety Report 9069783 (Version 1)
Quarter: 2013Q1

REPORT INFORMATION
  Report Type: Report from Study
  Country: JP (occurrence: JP)
  Receive Date: 20130215
  Receipt Date: 20130215
  Transmission Date: 20140127
  Serious: Yes (Other)
  Sender: FDA-Public Use
  Company Number: JP-GILEAD-2013-0069635

PATIENT
  Age: 57 None
  Sex: Male

DRUGS (14)
  1. AMBRISENTAN [Suspect]
     Indication: INTERSTITIAL LUNG DISEASE
     Dosage: 2.5 MG, QD
     Route: 048
     Dates: start: 20101019, end: 20110328
  2. AMLODIPINE [Concomitant]
     Indication: PULMONARY HYPERTENSION
     Route: 048
  3. AVAPRO [Concomitant]
     Indication: PULMONARY HYPERTENSION
     Route: 048
  4. REVATIO [Concomitant]
     Indication: PULMONARY HYPERTENSION
     Route: 048
  5. BERASUS [Concomitant]
     Indication: PULMONARY HYPERTENSION
     Route: 048
  6. FUROSEMIDE [Concomitant]
     Indication: PULMONARY HYPERTENSION
     Route: 048
  7. MEDROL                             /00049601/ [Concomitant]
     Indication: PULMONARY HYPERTENSION
     Route: 048
  8. COBALAMIN [Concomitant]
     Indication: PROPHYLAXIS
     Route: 048
  9. BROTIZOLAM [Concomitant]
     Indication: ARRHYTHMIA
     Route: 048
  10. SELBEX [Concomitant]
     Indication: PROPHYLAXIS AGAINST GASTROINTESTINAL ULCER
     Route: 048
  11. MUCOSOLVAN [Concomitant]
     Indication: ASTHMA
     Route: 048
  12. PARIET [Concomitant]
     Indication: PROPHYLAXIS AGAINST GASTROINTESTINAL ULCER
     Route: 048
  13. KETAS [Concomitant]
     Indication: ASTHMA
     Route: 065
  14. WARFARIN [Concomitant]
     Indication: CARDIAC FAILURE
     Route: 048

REACTIONS (2)
  - Mallory-Weiss syndrome [Recovered/Resolved]
  - Bacterial diarrhoea [Recovered/Resolved]
